FAERS Safety Report 6120862-X (Version None)
Quarter: 2009Q1

REPORT INFORMATION
  Report Type: 
  Country: None (occurrence: None)
  Receive Date: 20090317
  Receipt Date: 20090309
  Transmission Date: 20090719
  Serious: Yes (Hospitalization, Disabling)
  Sender: FDA-Public Use
  Company Number: US-GILEAD-2009-0020005

PATIENT
  Sex: Female

DRUGS (11)
  1. LETAIRIS [Suspect]
     Indication: PULMONARY ARTERIAL HYPERTENSION
     Route: 048
     Dates: start: 20080812
  2. REMODULIN [Concomitant]
  3. DIGOXIN [Concomitant]
  4. SPIRONOLACTONE [Concomitant]
  5. LASIX [Concomitant]
  6. ASPIRIN [Concomitant]
  7. COUMADIN [Concomitant]
  8. VALIUM [Concomitant]
  9. ACIPHEX [Concomitant]
  10. NORCO [Concomitant]
  11. AMBIEN [Concomitant]

REACTIONS (4)
  - DRUG INEFFECTIVE [None]
  - FLUID RETENTION [None]
  - OXYGEN SATURATION DECREASED [None]
  - PULMONARY HYPERTENSION [None]
